FAERS Safety Report 14570217 (Version 1)
Quarter: 2018Q1

REPORT INFORMATION
  Report Type: Report from Study
  Country: GB (occurrence: GB)
  Receive Date: 20180225
  Receipt Date: 20180225
  Transmission Date: 20180509
  Serious: Yes (Life-Threatening)
  Sender: FDA-Public Use
  Company Number: GB-ROCHE-2012843

PATIENT
  Sex: Female

DRUGS (21)
  1. METHOTREXATE. [Suspect]
     Active Substance: METHOTREXATE
     Indication: BURKITT^S LYMPHOMA
     Route: 042
     Dates: start: 20170315
  2. METOCLOPRAMIDE. [Concomitant]
     Active Substance: METOCLOPRAMIDE
     Indication: NAUSEA
     Route: 042
     Dates: start: 20170530
  3. HYDRALAZINE [Concomitant]
     Active Substance: HYDRALAZINE HYDROCHLORIDE
     Indication: HYPERTENSION
     Route: 048
     Dates: start: 20170410
  4. MELATONIN [Concomitant]
     Active Substance: MELATONIN
     Route: 048
     Dates: start: 20170530
  5. CHLORPHENAMINE [Concomitant]
     Active Substance: CHLORPHENIRAMINE MALEATE
     Route: 042
     Dates: start: 20170604
  6. HYDROCORTISONE. [Concomitant]
     Active Substance: HYDROCORTISONE
     Route: 042
     Dates: start: 20170530
  7. RITUXIMAB. [Suspect]
     Active Substance: RITUXIMAB
     Dosage: LAST CYCLE PRIOR TO EVENT ONSET, FOR A CUMULATIVE DOSE BEFORE EVENT ONSET AT 1000 MG;
     Route: 042
     Dates: start: 20170515
  8. DOXORUBICIN [Suspect]
     Active Substance: DOXORUBICIN
     Indication: BURKITT^S LYMPHOMA
     Dosage: FIRST CYCLE; THERAPY DURSTION 4 DAYS
     Route: 042
     Dates: start: 20170315
  9. METHOTREXATE. [Suspect]
     Active Substance: METHOTREXATE
     Dosage: LAST CYCLE PRIOR TO EVENT ONSET; FOR A CUMULATIVE DOSE BEFORE EVENT ONSET AT 9.2 G
     Route: 042
     Dates: start: 20170530, end: 20170531
  10. CO-AMOXICILLIN [Concomitant]
     Active Substance: AMOXICILLIN\CLAVULANATE POTASSIUM
     Route: 048
     Dates: start: 20170603
  11. MORPHINE SULPHATE [Concomitant]
     Active Substance: MORPHINE SULFATE
     Indication: ANALGESIC THERAPY
     Route: 048
     Dates: start: 20170530
  12. GENTAMICIN. [Concomitant]
     Active Substance: GENTAMICIN
     Route: 042
     Dates: start: 20170604
  13. OMEPRAZOL [Concomitant]
     Active Substance: OMEPRAZOLE
     Route: 048
     Dates: start: 20170410
  14. CYCLOPHOSPHAMIDE. [Suspect]
     Active Substance: CYCLOPHOSPHAMIDE
     Dosage: LAST CYCLE PRIOR TO EVENT ONSET; FOR A CUMULATIVE DOSE BEFORE EVENT ONSET AT 3030 MG
     Route: 042
     Dates: start: 20170531, end: 20170603
  15. DAPSONE. [Suspect]
     Active Substance: DAPSONE
     Indication: INFECTION PROPHYLAXIS
     Route: 048
     Dates: start: 20170422, end: 20170604
  16. GELCLAIR (UNITED KINGDOM) [Concomitant]
     Route: 048
     Dates: start: 20170531
  17. PARACETAMOL [Concomitant]
     Active Substance: ACETAMINOPHEN
     Route: 048
     Dates: start: 20170601
  18. RITUXIMAB. [Suspect]
     Active Substance: RITUXIMAB
     Indication: BURKITT^S LYMPHOMA
     Dosage: FIRST CYCLE; THERAPY DURATION 1 DAY
     Route: 042
     Dates: start: 20170327
  19. CYCLOPHOSPHAMIDE. [Suspect]
     Active Substance: CYCLOPHOSPHAMIDE
     Indication: BURKITT^S LYMPHOMA
     Route: 042
     Dates: start: 20170315
  20. DOXORUBICIN [Suspect]
     Active Substance: DOXORUBICIN
     Dosage: LAST CYCLE PRIOR TO EVENT ONSET; FOR A CUMULATIVE DOSE BEFORE EVENT ONSET AT 69 MG;
     Route: 042
     Dates: start: 20170531, end: 20170531
  21. GABAPENTIN. [Concomitant]
     Active Substance: GABAPENTIN
     Route: 048
     Dates: start: 20170407

REACTIONS (2)
  - Hypoxia [Recovered/Resolved]
  - Methaemoglobinaemia [Recovered/Resolved]

NARRATIVE: CASE EVENT DATE: 20170604
